FAERS Safety Report 25871508 (Version 1)
Quarter: 2025Q4

REPORT INFORMATION
  Report Type: Spontaneous
  Country: CN (occurrence: CN)
  Receive Date: 20251001
  Receipt Date: 20251001
  Transmission Date: 20260118
  Serious: Yes (Other)
  Sender: ELI LILLY AND COMPANY
  Company Number: CN-ELI_LILLY_AND_COMPANY-CN202509024189

PATIENT
  Age: 21 Year
  Sex: Male

DRUGS (4)
  1. PEMETREXED [Suspect]
     Active Substance: PEMETREXED
     Indication: Colorectal cancer metastatic
     Dosage: 800 MG, OTHER (EVERY 3 WEEKS)
     Route: 065
     Dates: start: 2023, end: 20240315
  2. TISLELIZUMAB [Suspect]
     Active Substance: TISLELIZUMAB
     Indication: Colorectal cancer metastatic
     Dosage: 200 MG, OTHER (EVERY 3 WEEKS)
     Route: 065
     Dates: start: 2023, end: 20240315
  3. REGORAFENIB [Suspect]
     Active Substance: REGORAFENIB
     Indication: Colorectal cancer metastatic
     Dosage: 120 MG, OTHER (3 WEEKS ON/1WEEK OFF)
     Route: 065
     Dates: start: 2023, end: 20240315
  4. RALTITREXED [Suspect]
     Active Substance: RALTITREXED
     Indication: Colorectal cancer metastatic
     Dosage: 4 MG, OTHER (EVERY 3 WEEKS)
     Route: 065
     Dates: start: 2023, end: 20240315

REACTIONS (3)
  - Pleural effusion [Unknown]
  - Malignant neoplasm progression [Unknown]
  - Eczema [Unknown]

NARRATIVE: CASE EVENT DATE: 20240315
